FAERS Safety Report 17220771 (Version 5)
Quarter: 2020Q1

REPORT INFORMATION
  Report Type: Spontaneous
  Country: US (occurrence: US)
  Receive Date: 20191231
  Receipt Date: 20200302
  Transmission Date: 20200409
  Serious: No
  Sender: FDA-Public Use
  Company Number: US-ACTELION-A-US2019-199585

PATIENT
  Age: 78 Year
  Sex: Male
  Weight: 93.88 kg

DRUGS (4)
  1. OPSUMIT [Suspect]
     Active Substance: MACITENTAN
     Indication: PULMONARY ARTERIAL HYPERTENSION
     Dosage: 10 MG, QD
     Route: 048
     Dates: start: 201910, end: 202002
  2. ADEMPAS [Suspect]
     Active Substance: RIOCIGUAT
     Dosage: 0.5 MG, TID
     Route: 065
     Dates: start: 201912, end: 202002
  3. AMLODIPINE [Concomitant]
     Active Substance: AMLODIPINE BESYLATE
  4. ADEMPAS [Suspect]
     Active Substance: RIOCIGUAT
     Indication: PRODUCT USED FOR UNKNOWN INDICATION
     Dosage: 1 MG
     Route: 065
     Dates: end: 20191216

REACTIONS (11)
  - Nasal congestion [Unknown]
  - Therapeutic response unexpected [Unknown]
  - Diarrhoea [Recovering/Resolving]
  - Sputum discoloured [Unknown]
  - Erythema [Unknown]
  - Gastrointestinal sounds abnormal [Unknown]
  - Oedema peripheral [Unknown]
  - Weight increased [Unknown]
  - Upper respiratory tract infection [Unknown]
  - Abnormal weight gain [Recovered/Resolved]
  - Nasopharyngitis [Unknown]

NARRATIVE: CASE EVENT DATE: 201911
